FAERS Safety Report 7022444-4 (Version None)
Quarter: 2010Q3

REPORT INFORMATION
  Report Type: 
  Country: None (occurrence: None)
  Receive Date: 20100930
  Receipt Date: 20100923
  Transmission Date: 20110219
  Serious: Yes (Hospitalization)
  Sender: FDA-Public Use
  Company Number: DE-ROCHE-728993

PATIENT
  Age: 30 Year
  Sex: Male
  Weight: 100 kg

DRUGS (6)
  1. CELLCEPT [Suspect]
     Indication: PRODUCT USED FOR UNKNOWN INDICATION
     Route: 065
  2. VALGANCICLOVIR HCL [Suspect]
     Indication: CYTOMEGALOVIRUS INFECTION
     Route: 065
  3. PROGRAF [Concomitant]
     Dates: start: 20080519, end: 20090205
  4. PANTOPRAZOLE [Concomitant]
  5. NEBIVOLOL [Concomitant]
  6. IRBESARTAN [Concomitant]

REACTIONS (1)
  - POLYURIA [None]
